FAERS Safety Report 22383282 (Version 2)
Quarter: 2023Q2

REPORT INFORMATION
  Report Type: Spontaneous
  Country: GB (occurrence: GB)
  Receive Date: 20230530
  Receipt Date: 20230607
  Transmission Date: 20230721
  Serious: Yes (Other)
  Sender: FDA-Public Use
  Company Number: GB-TILLOMED LABORATORIES LTD.-2023-EPL-002748

PATIENT
  Age: 88 Year
  Sex: Female

DRUGS (7)
  1. LOPERAMIDE [Suspect]
     Active Substance: LOPERAMIDE
     Indication: Incontinence
     Dosage: (WITHIN 6 WEEKS)
     Route: 065
     Dates: start: 20230218, end: 20230218
  2. LOPERAMIDE [Suspect]
     Active Substance: LOPERAMIDE
     Indication: Rectal haemorrhage
     Dosage: UNK, (WITHIN 6 WEEKS) 2 DAY GAP BETWEEN THE FIRST
     Route: 065
     Dates: start: 202302
  3. APIXABAN [Concomitant]
     Active Substance: APIXABAN
     Dosage: UNK
     Route: 065
  4. FYBOGEL [Concomitant]
     Active Substance: HERBALS\PLANTAGO OVATA SEED
     Indication: Abdominal discomfort
     Dosage: UNK (2 OR 3 YEARS AGO)
     Route: 065
  5. IMODIUM [Concomitant]
     Active Substance: LOPERAMIDE HYDROCHLORIDE
     Indication: Incontinence
     Dosage: UNK 2 OR 3 YEARS;
     Route: 048
  6. ACETAMINOPHEN [Concomitant]
     Active Substance: ACETAMINOPHEN
     Indication: Pain
     Dosage: UNK  QD (8 X)
     Route: 065
  7. THYROXINE I 125 [Concomitant]
     Indication: Thyroid disorder
     Dosage: UNK
     Route: 065

REACTIONS (2)
  - Hallucination [Recovered/Resolved]
  - Off label use [Unknown]

NARRATIVE: CASE EVENT DATE: 20230201
